FAERS Safety Report 6112314-8 (Version None)
Quarter: 2009Q1

REPORT INFORMATION
  Report Type: 
  Country: None (occurrence: None)
  Receive Date: 20090311
  Receipt Date: 20090311
  Transmission Date: 20090719
  Serious: Yes (Other)
  Sender: FDA-Public Use
  Company Number: None

PATIENT
  Age: 66 Year
  Sex: Female
  Weight: 70.3075 kg

DRUGS (1)
  1. ACTONEL [Suspect]
     Indication: OSTEOPENIA
     Dosage: 150MG 1 PER MO. ONLY TOOK THE ONE SAMPLE

REACTIONS (6)
  - ARTHRALGIA [None]
  - BONE PAIN [None]
  - FUNGAL SKIN INFECTION [None]
  - INFLUENZA LIKE ILLNESS [None]
  - MYALGIA [None]
  - SKIN IRRITATION [None]
